FAERS Safety Report 9046491 (Version 1)
Quarter: 2013Q1

REPORT INFORMATION
  Report Type: Spontaneous
  Country: US (occurrence: None)
  Receive Date: 20130128
  Receipt Date: 20130128
  Transmission Date: 20140127
  Serious: No
  Sender: FDA-Public Use
  Company Number: None

PATIENT
  Age: 51 Year
  Sex: Male
  Weight: 105.5 kg

DRUGS (1)
  1. LANTUS [Suspect]
     Dates: start: 20121226, end: 20130118

REACTIONS (3)
  - Drug ineffective [None]
  - Product quality issue [None]
  - Blood glucose increased [None]
